FAERS Safety Report 9646727 (Version 1)
Quarter: 2013Q4

REPORT INFORMATION
  Report Type: Spontaneous
  Country: US (occurrence: US)
  Receive Date: 20131027
  Receipt Date: 20131027
  Transmission Date: 20140711
  Serious: No
  Sender: FDA-Public Use
  Company Number: US-PURDUE-USA-2013-0102480

PATIENT
  Sex: Male

DRUGS (2)
  1. OXYCONTIN TABLETS [Suspect]
     Indication: ANALGESIC THERAPY
     Dosage: 80 MG, UNK
  2. MORPHINE SULFATE (SIMILAR TO NDA 19-516) [Suspect]
     Indication: ANALGESIC THERAPY
     Dosage: 15 MG, Q4H

REACTIONS (1)
  - Inadequate analgesia [Unknown]
